FAERS Safety Report 7608384-8 (Version None)
Quarter: 2011Q3

REPORT INFORMATION
  Report Type: 
  Country: None (occurrence: None)
  Receive Date: 20110714
  Receipt Date: 20110705
  Transmission Date: 20111222
  Serious: Yes (Hospitalization, Other)
  Sender: FDA-Public Use
  Company Number: FR-JNJFOC-20110608677

PATIENT
  Sex: Female
  Weight: 74 kg

DRUGS (8)
  1. NIZORAL [Suspect]
     Indication: CUSHING'S SYNDROME
     Route: 048
     Dates: start: 20100401, end: 20100630
  2. EUPRESSYL [Concomitant]
     Route: 048
     Dates: start: 20000101
  3. DIAMICRON [Concomitant]
     Route: 065
  4. NIZORAL [Suspect]
     Route: 048
     Dates: start: 20100701, end: 20110401
  5. TENORMIN [Concomitant]
     Route: 065
     Dates: start: 20000101
  6. ATORVASTATIN CALCIUM [Concomitant]
     Route: 048
     Dates: start: 20000101
  7. NIZORAL [Suspect]
     Route: 048
     Dates: start: 20110601
  8. FLUCONAZOLE [Concomitant]
     Dates: start: 20110401, end: 20110501

REACTIONS (4)
  - OVERDOSE [None]
  - DRUG INEFFECTIVE FOR UNAPPROVED INDICATION [None]
  - ALOPECIA [None]
  - PULMONARY EMBOLISM [None]
